FAERS Safety Report 11938384 (Version 11)
Quarter: 2017Q2

REPORT INFORMATION
  Report Type: Report from Study
  Country: GR (occurrence: GR)
  Receive Date: 20160122
  Receipt Date: 20170504
  Transmission Date: 20170829
  Serious: Yes (Life-Threatening, Hospitalization)
  Sender: FDA-Public Use
  Company Number: GR-ROCHE-1692571

PATIENT
  Age: 64 Year
  Sex: Female
  Weight: 75 kg

DRUGS (15)
  1. OBINUTUZUMAB [Suspect]
     Active Substance: OBINUTUZUMAB
     Dosage: MAXIMAL INFUSION RATE: 400?MOST RECENT DOSE PRIOR TO VIRAL PNEUMONIA ONSET: 11/JAN/2016
     Route: 042
     Dates: start: 20160111, end: 20160111
  2. CLOPIDOGREL [Concomitant]
     Active Substance: CLOPIDOGREL BISULFATE
     Indication: CAROTID ARTERY STENOSIS
     Route: 048
     Dates: start: 20110501
  3. BENDAMUSTINE [Suspect]
     Active Substance: BENDAMUSTINE
     Indication: CHRONIC LYMPHOCYTIC LEUKAEMIA
     Route: 042
     Dates: start: 20160104, end: 20160104
  4. APOTEL [Concomitant]
     Active Substance: ACETAMINOPHEN
     Indication: PREMEDICATION
     Route: 042
     Dates: start: 20160104, end: 20160104
  5. LIPITOR [Concomitant]
     Active Substance: ATORVASTATIN CALCIUM
     Indication: HYPERCHOLESTEROLAEMIA
     Route: 048
     Dates: start: 20110201
  6. MICARDIS [Concomitant]
     Active Substance: TELMISARTAN
     Indication: HYPERTENSION
     Route: 048
     Dates: start: 20080101
  7. SALOSPIR [Concomitant]
     Active Substance: ASPIRIN
     Indication: CAROTID ARTERY STENOSIS
     Route: 048
     Dates: start: 20110501
  8. DEXAMETHASONE. [Concomitant]
     Active Substance: DEXAMETHASONE
     Indication: PREMEDICATION
     Route: 048
     Dates: start: 20160104, end: 20160104
  9. PREZOLON [Concomitant]
     Active Substance: PREDNISOLONE
     Indication: PREMEDICATION
     Route: 042
     Dates: start: 20160104, end: 20160104
  10. FENISTIL (GREECE) [Concomitant]
     Indication: PREMEDICATION
     Route: 042
     Dates: start: 20160104, end: 20160104
  11. OBINUTUZUMAB [Suspect]
     Active Substance: OBINUTUZUMAB
     Indication: CHRONIC LYMPHOCYTIC LEUKAEMIA
     Dosage: MAXIMAL INFUSION RATE: 12.5
     Route: 042
     Dates: start: 20160104, end: 20160104
  12. BENDAMUSTINE [Suspect]
     Active Substance: BENDAMUSTINE
     Dosage: LAST DOSE PRIOR TO EVENTS ONSET 05/JAN/2016
     Route: 042
     Dates: start: 20160105, end: 20160105
  13. ZYLAPOUR [Concomitant]
  14. OBINUTUZUMAB [Suspect]
     Active Substance: OBINUTUZUMAB
     Dosage: MAXIMAL INFUSION RATE: 400?MOST RECENT DOSE PRIOR TO FEBRILE NEUTROPENIA ONSET: 05/JAN/2016
     Route: 042
     Dates: start: 20160105, end: 20160105
  15. BONVIVA [Concomitant]
     Active Substance: IBANDRONATE SODIUM
     Indication: OSTEOPOROSIS
     Route: 048
     Dates: start: 20130301

REACTIONS (2)
  - Pneumonia viral [Recovered/Resolved]
  - Febrile neutropenia [Recovered/Resolved]

NARRATIVE: CASE EVENT DATE: 20160106
